FAERS Safety Report 9620741 (Version 2)
Quarter: 2013Q4

REPORT INFORMATION
  Report Type: Spontaneous
  Country: US (occurrence: US)
  Receive Date: 20131015
  Receipt Date: 20131106
  Transmission Date: 20140711
  Serious: Yes (Other)
  Sender: FDA-Public Use
  Company Number: US-BIOGENIDEC-2013BI098391

PATIENT
  Age: 41 Year
  Sex: Female

DRUGS (3)
  1. TECFIDERA [Suspect]
     Indication: MULTIPLE SCLEROSIS
     Route: 048
     Dates: start: 20130812
  2. BIOTIN [Concomitant]
  3. QUESTRAN [Concomitant]

REACTIONS (4)
  - Angioedema [Recovered/Resolved]
  - Pneumonia [Recovered/Resolved]
  - Viral infection [Recovered/Resolved]
  - Overdose [Not Recovered/Not Resolved]
